FAERS Safety Report 12245160 (Version 2)
Quarter: 2016Q2

REPORT INFORMATION
  Report Type: Spontaneous
  Country: AU (occurrence: AU)
  Receive Date: 20160407
  Receipt Date: 20160418
  Transmission Date: 20160815
  Serious: Yes (Hospitalization)
  Sender: FDA-Public Use
  Company Number: AU-TOLMAR, INC.-2016AU003284

PATIENT
  Sex: Male

DRUGS (1)
  1. ELIGARD [Suspect]
     Active Substance: LEUPROLIDE ACETATE
     Indication: PROSTATE CANCER
     Dosage: 22.5 MG, Q3MONTHS
     Route: 065
     Dates: start: 20150918

REACTIONS (1)
  - Dyspnoea [Recovering/Resolving]
